FAERS Safety Report 9412891 (Version 1)
Quarter: 2013Q2

REPORT INFORMATION
  Report Type: Spontaneous
  Country: JP (occurrence: None)
  Receive Date: 20130523
  Receipt Date: 20130523
  Transmission Date: 20140414
  Serious: Yes (Other)
  Sender: FDA-Public Use
  Company Number: 2013-000859

PATIENT
  Age: 78 Year
  Sex: Female

DRUGS (1)
  1. BENET (RISEDRONATE SODIUM) TABLET [Suspect]
     Route: 048
     Dates: start: 20060613, end: 201302

REACTIONS (1)
  - Oral neoplasm [None]
